FAERS Safety Report 22246950 (Version 3)
Quarter: 2023Q2

REPORT INFORMATION
  Report Type: Spontaneous
  Country: DE (occurrence: DE)
  Receive Date: 20230424
  Receipt Date: 20230601
  Transmission Date: 20230721
  Serious: Yes (Hospitalization)
  Sender: FDA-Public Use
  Company Number: DE-TEVA-2023-DE-2878322

PATIENT
  Age: 62 Year
  Sex: Female

DRUGS (6)
  1. NIFEDIPINE [Suspect]
     Active Substance: NIFEDIPINE
     Indication: Hypertension
     Dosage: AT NOON 5-10 DROPS (DOSAGE: 20-10-10), 3X10
     Route: 048
  2. ADALAT [Suspect]
     Active Substance: NIFEDIPINE
     Indication: Hypertension
     Dosage: 1X1
     Route: 048
  3. FENOTEROL HYDROBROMIDE\IPRATROPIUM BROMIDE [Concomitant]
     Active Substance: FENOTEROL HYDROBROMIDE\IPRATROPIUM BROMIDE
     Indication: Product used for unknown indication
     Dosage: (2-2-2-2; AT NIGHT 1 UP TO 2 TIMES)
  4. PULMICORT TURBUHALER [Concomitant]
     Active Substance: BUDESONIDE
     Indication: Product used for unknown indication
     Dosage: 400 (1-1)
  5. Spiriva Rispimat [Concomitant]
     Indication: Product used for unknown indication
     Dosage: (1-0-0)
  6. FORMOTEROL FUMARATE [Concomitant]
     Active Substance: FORMOTEROL FUMARATE
     Indication: Product used for unknown indication
     Dosage: (1-2-1)

REACTIONS (8)
  - Dyspnoea [Recovered/Resolved]
  - Bronchospasm [Unknown]
  - Mobility decreased [Recovered/Resolved]
  - Hypertension [Unknown]
  - Blood pressure fluctuation [Unknown]
  - Secretion discharge [Recovered/Resolved]
  - Headache [Recovered/Resolved]
  - Anxiety [Unknown]

NARRATIVE: CASE EVENT DATE: 20221001
